FAERS Safety Report 18764735 (Version 3)
Quarter: 2021Q2

REPORT INFORMATION
  Report Type: Report from Study
  Country: CA (occurrence: CA)
  Receive Date: 20210120
  Receipt Date: 20210607
  Transmission Date: 20210717
  Serious: Yes (Other)
  Sender: FDA-Public Use
  Company Number: NVSC2019CA077190

PATIENT
  Age: 81 Year
  Sex: Female

DRUGS (3)
  1. SANDOSTATIN LAR DEPOT [Suspect]
     Active Substance: OCTREOTIDE ACETATE
  2. SANDOSTATIN LAR DEPOT [Suspect]
     Active Substance: OCTREOTIDE ACETATE
     Indication: CARCINOID TUMOUR
     Dosage: 20 MG, Q4W
     Route: 030
     Dates: start: 20191025
  3. SANDOSTATIN LAR DEPOT [Suspect]
     Active Substance: OCTREOTIDE ACETATE

REACTIONS (9)
  - Fall [Unknown]
  - Abdominal distension [Unknown]
  - Abdominal pain [Unknown]
  - Alopecia [Unknown]
  - Musculoskeletal pain [Not Recovered/Not Resolved]
  - Bursitis [Recovered/Resolved]
  - Blood pressure increased [Unknown]
  - Transfusion-related circulatory overload [Unknown]
  - Sensitive skin [Unknown]

NARRATIVE: CASE EVENT DATE: 2019
